FAERS Safety Report 14149289 (Version 1)
Quarter: 2017Q4

REPORT INFORMATION
  Report Type: Spontaneous
  Country: JP (occurrence: JP)
  Receive Date: 20171101
  Receipt Date: 20171101
  Transmission Date: 20180321
  Serious: Yes (Death, Hospitalization)
  Sender: FDA-Public Use
  Company Number: JP-TEVA-820215ROM

PATIENT
  Age: 79 Year
  Sex: Male

DRUGS (1)
  1. LEVOFLOXACIN. [Suspect]
     Active Substance: LEVOFLOXACIN
     Indication: INFLAMMATION
     Dosage: MULTIPLE 2-WEEK COURSES
     Route: 065

REACTIONS (7)
  - Graft infection [Fatal]
  - Peripheral artery thrombosis [Fatal]
  - Cerebral artery embolism [Fatal]
  - Medication error [Fatal]
  - Candida endophthalmitis [Fatal]
  - Candida infection [Fatal]
  - Hemiplegia [Fatal]
